FAERS Safety Report 5489256-4 (Version None)
Quarter: 2007Q4

REPORT INFORMATION
  Report Type: 
  Country: None (occurrence: None)
  Receive Date: 20071016
  Receipt Date: 20071004
  Transmission Date: 20080405
  Serious: Yes (Other)
  Sender: FDA-Public Use
  Company Number: 07-002032

PATIENT
  Age: 41 Year
  Sex: Female
  Weight: 56.2 kg

DRUGS (3)
  1. DOVONEX [Suspect]
     Dosage: 0.005 %, BID, TOPICAL
     Route: 061
     Dates: start: 19970101, end: 20070901
  2. DOVONEX [Suspect]
     Indication: PSORIASIS
     Dosage: ONE TO TWO TIMES DAILY, TOPICAL
     Route: 061
     Dates: start: 20070901
  3. SYNTHROID [Concomitant]

REACTIONS (4)
  - CONDITION AGGRAVATED [None]
  - DRUG INEFFECTIVE [None]
  - LIPOMA [None]
  - PSORIASIS [None]
